FAERS Safety Report 4383004-7 (Version None)
Quarter: 2004Q2

REPORT INFORMATION
  Report Type: 
  Country: None (occurrence: None)
  Receive Date: 20040526
  Receipt Date: 20031114
  Transmission Date: 20050107
  Serious: Yes (Disabling)
  Sender: FDA-Public Use
  Company Number: 2003176841US

PATIENT
  Sex: Female

DRUGS (4)
  1. ELLENCE [Suspect]
     Indication: BREAST CANCER
     Dosage: 200 MG, IV
     Route: 042
     Dates: start: 20021210
  2. FLUOROURACIL [Suspect]
     Indication: BREAST CANCER
     Dosage: 1000 MG, SINGLE, IV
     Route: 042
     Dates: start: 20021210
  3. ANZEMET (DOLASETRON MESILATE) [Concomitant]
  4. DECADRON [Concomitant]

REACTIONS (2)
  - EXTRAVASATION [None]
  - SKIN REACTION [None]
